FAERS Safety Report 4420962-6 (Version None)
Quarter: 2004Q3

REPORT INFORMATION
  Report Type: 
  Country: None (occurrence: None)
  Receive Date: 20040809
  Receipt Date: 20040728
  Transmission Date: 20050211
  Serious: Yes (Life-Threatening, Hospitalization)
  Sender: FDA-Public Use
  Company Number: FI-MERCK-0407FIN00052

PATIENT
  Age: 74 Year
  Sex: Female

DRUGS (7)
  1. ACETAMINOPHEN [Suspect]
     Indication: PAIN
     Route: 048
     Dates: start: 19990101, end: 20040714
  2. FOSAMAX [Suspect]
     Indication: OSTEOPOROSIS
     Route: 048
     Dates: start: 20040405, end: 20040714
  3. CALCIUM (UNSPECIFIED) AND VITAMIN D (UNSPECIFIED) [Concomitant]
     Indication: OSTEOPOROSIS
     Route: 048
     Dates: start: 20040405
  4. FLUTICASONE PROPIONATE [Concomitant]
     Indication: ASTHMA
     Route: 055
  5. FLUTICASONE PROPIONATE [Concomitant]
     Indication: RHINITIS
     Route: 065
  6. LANSOPRAZOLE [Suspect]
     Indication: PROPHYLAXIS
     Route: 048
     Dates: start: 20040405, end: 20040714
  7. PREDNISOLONE [Concomitant]
     Indication: IDIOPATHIC THROMBOCYTOPENIC PURPURA
     Route: 048

REACTIONS (3)
  - AGRANULOCYTOSIS [None]
  - C-REACTIVE PROTEIN INCREASED [None]
  - IDIOPATHIC THROMBOCYTOPENIC PURPURA [None]
